FAERS Safety Report 9224642 (Version 1)
Quarter: 2013Q1

REPORT INFORMATION
  Report Type: Spontaneous
  Country: US (occurrence: None)
  Receive Date: 20120914
  Receipt Date: 20120914
  Transmission Date: 20140127
  Serious: Yes (Other)
  Sender: FDA-Public Use
  Company Number: JPI-P-020133

PATIENT
  Age: 66 Year
  Sex: Female
  Weight: 62.14 kg

DRUGS (2)
  1. XYREM (500 MILLIGRAM/MILLILITERS, SOLUTION) (SODIUM OXYBATE) [Suspect]
     Indication: HYPERSOMNIA
     Route: 048
     Dates: start: 20120213
  2. LISINOPRIL [Concomitant]

REACTIONS (4)
  - Blood pressure increased [None]
  - Condition aggravated [None]
  - Palpitations [None]
  - Headache [None]
